FAERS Safety Report 23682361 (Version 3)
Quarter: 2024Q2

REPORT INFORMATION
  Report Type: Spontaneous
  Country: US (occurrence: US)
  Receive Date: 20240328
  Receipt Date: 20240401
  Transmission Date: 20240716
  Serious: No
  Sender: FDA-Public Use
  Company Number: US-Calliditas-2024CAL00458

PATIENT
  Age: 49 Year
  Sex: Male
  Weight: 89.8 kg

DRUGS (1)
  1. TARPEYO [Suspect]
     Active Substance: BUDESONIDE
     Indication: Haematuria
     Dosage: 16MG (4MG CAPSULES) ONCE DAILY
     Route: 048
     Dates: start: 20231109

REACTIONS (3)
  - Blood glucose increased [Unknown]
  - CD4 lymphocytes decreased [Unknown]
  - Herpes virus infection [Unknown]
